FAERS Safety Report 6904381-6 (Version None)
Quarter: 2010Q3

REPORT INFORMATION
  Report Type: 
  Country: None (occurrence: None)
  Receive Date: 20100804
  Receipt Date: 20090505
  Transmission Date: 20110219
  Serious: No
  Sender: FDA-Public Use
  Company Number: US-PFIZER INC-2009191016

PATIENT
  Age: 36 Year
  Sex: Male
  Weight: 88.45 kg

DRUGS (5)
  1. LYRICA [Suspect]
     Indication: MYALGIA
     Dosage: 75 MG, 2X/DAY
     Dates: start: 20090326, end: 20090328
  2. WARFARIN SODIUM [Concomitant]
     Indication: THROMBOSIS
     Dosage: 7.5MG AND 5MG ON ALTERNATING DAYS
  3. OXYCONTIN [Concomitant]
     Dosage: 80 MG, 2X/DAY
  4. PERCOCET [Concomitant]
     Dosage: 10/325; 3 TO 4 TIMES DAILY
  5. MULTI-VITAMINS [Concomitant]
     Dosage: UNK

REACTIONS (2)
  - DIPLOPIA [None]
  - VISION BLURRED [None]
